FAERS Safety Report 7967519-8 (Version None)
Quarter: 2011Q4

REPORT INFORMATION
  Report Type: 
  Country: None (occurrence: None)
  Receive Date: 20111209
  Receipt Date: 20111129
  Transmission Date: 20120403
  Serious: Yes (Life-Threatening)
  Sender: FDA-Public Use
  Company Number: JP-ALLERGAN-1015497US

PATIENT
  Age: 69 Year
  Sex: Female

DRUGS (15)
  1. LUMIGAN [Suspect]
     Indication: OPEN ANGLE GLAUCOMA
     Dosage: 1 GTT, QD
     Route: 047
     Dates: start: 20100109
  2. FAMOTIDINE [Concomitant]
     Indication: GASTRITIS
     Dosage: UNK
     Dates: start: 20100626
  3. LACTOSE [Concomitant]
     Indication: HEADACHE
     Dosage: UNK
     Route: 048
     Dates: start: 20060101
  4. FAMOTIDINE [Concomitant]
     Dosage: UNK
     Route: 048
     Dates: start: 20080730, end: 20100625
  5. SIMETRIDE ANHYDROUS CAFFEINE [Concomitant]
     Indication: HEADACHE
     Dosage: UNK
     Route: 048
     Dates: start: 20060101
  6. CARTEOLOL HYDROCHLORIDE [Concomitant]
     Indication: OPEN ANGLE GLAUCOMA
     Dosage: 1 GTT, QD
     Route: 047
     Dates: start: 20090404
  7. TEARBALANCE [Concomitant]
     Indication: DRY EYE
     Dosage: 1 GTT, QID
     Route: 047
     Dates: start: 20090801
  8. ASPIRIN [Concomitant]
     Indication: CEREBRAL INFARCTION
     Dosage: UNK
     Dates: start: 20080730
  9. ALENDRONATE SODIUM [Concomitant]
     Indication: OSTEOPOROSIS
     Dosage: UNK
     Route: 048
     Dates: start: 20090904
  10. LOXONIN [Concomitant]
     Indication: NECK PAIN
     Dosage: UNK
     Dates: start: 20070101
  11. MERISLON [Concomitant]
     Indication: DIZZINESS
     Route: 048
  12. COLIBACILLUS VACCINE HYDROCORTISONE [Concomitant]
     Indication: PRODUCT USED FOR UNKNOWN INDICATION
     Dosage: UNK
     Dates: start: 20100512, end: 20100614
  13. ALENDRONATE SODIUM [Suspect]
     Dosage: UNK
     Dates: start: 20090904
  14. NITRAZEPAM [Concomitant]
     Indication: INSOMNIA
     Dosage: UNK
     Route: 048
     Dates: start: 20091021
  15. ADALAT [Concomitant]
     Indication: HYPERTENSION
     Route: 048

REACTIONS (5)
  - BLEPHARAL PIGMENTATION [None]
  - IRIS HYPERPIGMENTATION [None]
  - CONJUNCTIVAL HYPERAEMIA [None]
  - MYOCARDIAL INFARCTION [None]
  - EYELASH THICKENING [None]
